FAERS Safety Report 11301536 (Version 1)
Quarter: 2015Q3

REPORT INFORMATION
  Report Type: Spontaneous
  Country: US (occurrence: US)
  Receive Date: 20150722
  Receipt Date: 20150722
  Transmission Date: 20151125
  Serious: No
  Sender: FDA-Public Use
  Company Number: US-ELI_LILLY_AND_COMPANY-US201002001942

PATIENT
  Age: 13 Year
  Sex: Male

DRUGS (2)
  1. HUMATROPE [Suspect]
     Active Substance: SOMATROPIN
     Indication: BLOOD GROWTH HORMONE
     Dosage: UNK, UNKNOWN
     Route: 065
     Dates: start: 2008
  2. HUMATROPE [Suspect]
     Active Substance: SOMATROPIN
     Dosage: 2.3 MG, DAILY (1/D)
     Route: 065
     Dates: start: 2009

REACTIONS (2)
  - Delayed puberty [Not Recovered/Not Resolved]
  - Bone scan abnormal [Not Recovered/Not Resolved]

NARRATIVE: CASE EVENT DATE: 2009
